FAERS Safety Report 23318238 (Version 1)
Quarter: 2023Q4

REPORT INFORMATION
  Report Type: Spontaneous
  Country: NL (occurrence: NL)
  Receive Date: 20231220
  Receipt Date: 20231220
  Transmission Date: 20240110
  Serious: Yes (Other)
  Sender: FDA-Public Use
  Company Number: NL-LRB-00928053

PATIENT
  Age: 68 Year
  Sex: Male
  Weight: 95 kg

DRUGS (9)
  1. ROSUVASTATIN [Suspect]
     Active Substance: ROSUVASTATIN
     Indication: Hypercholesterolaemia
     Dosage: 10 MILLIGRAM, ONCE A DAY (1 DD 1 TABLET)
     Route: 065
     Dates: start: 20220531, end: 20230801
  2. ASPIRIN [Concomitant]
     Active Substance: ASPIRIN
     Indication: Product used for unknown indication
     Dosage: 80 MILLIGRAM, ONCE A DAY (NEEM 80 MG IN VIA DE MOND ELKE OCHTEND TIJDENS HET ONTBIJT)
     Route: 065
  3. CHOLECALCIFEROL [Concomitant]
     Active Substance: CHOLECALCIFEROL
     Indication: Product used for unknown indication
     Dosage: 5600 INTERNATIONAL UNIT, EVERY WEEK (CAPSULE NEEM 1 CAPSULE IN VIA DE MOND 1X PER WEEK MAANDAG)
     Route: 065
  4. CITALOPRAM [Concomitant]
     Active Substance: CITALOPRAM HYDROBROMIDE
     Indication: Product used for unknown indication
     Dosage: 40 MILLIGRAM, ONCE A DAY (NEEM 40 MG IN VIA DE MOND ELKE OCHTEND TIJDENS HET ONTBIJT.)
     Route: 065
  5. INSULIN DEGLUDEC [Concomitant]
     Active Substance: INSULIN DEGLUDEC
     Indication: Product used for unknown indication
     Dosage: 72 INTERNATIONAL UNIT, ONCE A DAY (72 EENHEDEN IN DE AVOND 20.00)
     Route: 065
  6. INSULIN ASPART [Concomitant]
     Active Substance: INSULIN ASPART
     Indication: Product used for unknown indication
     Dosage: 16 INTERNATIONAL UNIT, 3 TIMES A DAY (16 EENHEDEN 3 KEER PER DAG TIJDENS DE MAALTIJD)
     Route: 065
  7. METRONIDAZOLE [Concomitant]
     Active Substance: METRONIDAZOLE
     Indication: Product used for unknown indication
     Dosage: 1 DOSAGE FORM (BRENG AAN OP DE HUID ZO NODIG)
     Route: 065
  8. NITROGLYCERIN [Concomitant]
     Active Substance: NITROGLYCERIN
     Indication: Product used for unknown indication
     Dosage: 1 DOSAGE FORM (1 SPRAY ZONODIG VOOR PIJN OP DE BORST.)
     Route: 065
  9. OMEPRAZOLE [Concomitant]
     Active Substance: OMEPRAZOLE
     Indication: Product used for unknown indication
     Dosage: 40 MILLIGRAM, ONCE A DAY (NEEM 1 CAPSULE IN VIA DE MOND DAGELIJK)
     Route: 065

REACTIONS (1)
  - Syncope [Recovered/Resolved]
